FAERS Safety Report 6900649-8 (Version None)
Quarter: 2010Q3

REPORT INFORMATION
  Report Type: 
  Country: None (occurrence: None)
  Receive Date: 20100730
  Receipt Date: 20100719
  Transmission Date: 20110219
  Serious: Yes (Hospitalization)
  Sender: FDA-Public Use
  Company Number: B0666948A

PATIENT
  Age: 24 Month
  Sex: Female

DRUGS (1)
  1. ORLISTAT [Suspect]
     Dosage: 120 MG / SINGLE DOSE / ORAL
     Route: 048

REACTIONS (2)
  - ACCIDENTAL DRUG INTAKE BY CHILD [None]
  - ACCIDENTAL OVERDOSE [None]
